FAERS Safety Report 12595977 (Version 1)
Quarter: 2016Q3

REPORT INFORMATION
  Report Type: Report from Study
  Country: US (occurrence: US)
  Receive Date: 20160726
  Receipt Date: 20160726
  Transmission Date: 20161109
  Serious: No
  Sender: FDA-Public Use
  Company Number: US-AMGEN-USASL2016046255

PATIENT
  Age: 49 Year
  Sex: Male

DRUGS (2)
  1. POMALYST [Concomitant]
     Active Substance: POMALIDOMIDE
     Dosage: UNK
  2. KYPROLIS [Suspect]
     Active Substance: CARFILZOMIB
     Indication: PRODUCT USED FOR UNKNOWN INDICATION
     Dosage: UNK
     Route: 065
     Dates: start: 20160113

REACTIONS (6)
  - Dyspnoea [Unknown]
  - Heart rate abnormal [Unknown]
  - Lung disorder [Unknown]
  - Heart rate decreased [Unknown]
  - Off label use [Unknown]
  - Cardiac disorder [Unknown]
